FAERS Safety Report 20435359 (Version 1)
Quarter: 2022Q1

REPORT INFORMATION
  Report Type: Spontaneous
  Country: US (occurrence: US)
  Receive Date: 20220206
  Receipt Date: 20220206
  Transmission Date: 20220423
  Serious: Yes (Other)
  Sender: FDA-Public Use
  Company Number: US-Blueprint Medicines Corporation-SP-US-2022-000284

PATIENT
  Sex: Female

DRUGS (1)
  1. AYVAKIT [Suspect]
     Active Substance: AVAPRITINIB
     Indication: Systemic mastocytosis
     Route: 048
     Dates: start: 20220106

REACTIONS (5)
  - Exophthalmos [Unknown]
  - Bone pain [Unknown]
  - Taste disorder [Unknown]
  - Decreased appetite [Unknown]
  - Periorbital oedema [Unknown]
